FAERS Safety Report 22136279 (Version 1)
Quarter: 2023Q1

REPORT INFORMATION
  Report Type: Spontaneous
  Country: US (occurrence: US)
  Receive Date: 20230324
  Receipt Date: 20230324
  Transmission Date: 20230418
  Serious: No
  Sender: FDA-Public Use
  Company Number: US-BIOMARINAP-US-2023-149304

PATIENT

DRUGS (2)
  1. PALYNZIQ [Suspect]
     Active Substance: PEGVALIASE-PQPZ
     Indication: Product used for unknown indication
     Dosage: 20 MILLIGRAM, QD
     Route: 058
  2. PALYNZIQ [Suspect]
     Active Substance: PEGVALIASE-PQPZ
     Dosage: UNK
     Route: 058
     Dates: start: 20220801

REACTIONS (6)
  - Peripheral swelling [Recovering/Resolving]
  - Skin discolouration [Unknown]
  - Dry skin [Unknown]
  - Skin exfoliation [Unknown]
  - Alopecia [Recovered/Resolved]
  - Amino acid level decreased [Unknown]

NARRATIVE: CASE EVENT DATE: 20221031
